FAERS Safety Report 20156553 (Version 3)
Quarter: 2022Q1

REPORT INFORMATION
  Report Type: Other
  Country: MX (occurrence: None)
  Receive Date: 20211207
  Receipt Date: 20220309
  Transmission Date: 20220423
  Serious: Yes (Life-Threatening, Disabling, Other)
  Sender: FDA-Public Use
  Company Number: MX-ROCHE-2649803

PATIENT
  Age: 69 Year
  Sex: Female

DRUGS (2)
  1. TOCILIZUMAB [Suspect]
     Active Substance: TOCILIZUMAB
     Indication: Rheumatoid arthritis
     Dosage: TOCILIZUMAB PREFILLED SYRINGES 162 MG/ 0.9 ML
     Route: 058
     Dates: start: 20200321
  2. TOCILIZUMAB [Suspect]
     Active Substance: TOCILIZUMAB
     Dosage: TOCILIZUMAB PREFILLED SYRINGES 162 MG/ 0.9 ML
     Route: 058

REACTIONS (15)
  - Movement disorder [Unknown]
  - Nervousness [Unknown]
  - Intestinal ulcer [Not Recovered/Not Resolved]
  - Muscular weakness [Recovered/Resolved]
  - Pain [Unknown]
  - Ill-defined disorder [Unknown]
  - Ill-defined disorder [Unknown]
  - Anxiety [Unknown]
  - Pulmonary oedema [Not Recovered/Not Resolved]
  - Asthenia [Not Recovered/Not Resolved]
  - Malaise [Not Recovered/Not Resolved]
  - Spinal disorder [Not Recovered/Not Resolved]
  - Fatigue [Recovered/Resolved]
  - Clumsiness [Recovered/Resolved]
  - Loss of control of legs [Not Recovered/Not Resolved]

NARRATIVE: CASE EVENT DATE: 20210511
